FAERS Safety Report 6339860-6 (Version None)
Quarter: 2009Q3

REPORT INFORMATION
  Report Type: 
  Country: None (occurrence: None)
  Receive Date: 20090903
  Receipt Date: 20090826
  Transmission Date: 20100115
  Serious: Yes (Hospitalization)
  Sender: FDA-Public Use
  Company Number: US-JNJFOC-20090805948

PATIENT
  Sex: Female
  Weight: 51.8 kg

DRUGS (8)
  1. INFLIXIMAB [Suspect]
     Indication: CROHN'S DISEASE
     Route: 042
  2. HUMIRA [Concomitant]
     Indication: CROHN'S DISEASE
     Dosage: 4 DOSES AT START OF THERAPY WITH 2 DOSES 2 WEEKS LATER; THEN 40 MG 1 DOSE EVERY OTHER WEEK
     Route: 058
  3. IRON [Concomitant]
     Route: 048
  4. DAIRY DIGESTIVE ENZYME [Concomitant]
     Dosage: 9000 UNITS
     Route: 048
  5. MULTI-VITAMINS [Concomitant]
     Route: 048
  6. NAUZINE [Concomitant]
     Indication: NAUSEA
     Dosage: AS NEEDED
     Route: 048
  7. PROTONIX [Concomitant]
     Dosage: 1 TABLET 30 MINUTES BEFORE SUPPER DAILY
     Route: 048
  8. FOLIC ACID [Concomitant]
     Route: 048

REACTIONS (1)
  - CROHN'S DISEASE [None]
